FAERS Safety Report 7339458-7 (Version None)
Quarter: 2011Q1

REPORT INFORMATION
  Report Type: 
  Country: None (occurrence: None)
  Receive Date: 20110308
  Receipt Date: 20110103
  Transmission Date: 20110831
  Serious: No
  Sender: FDA-Public Use
  Company Number: US-AMGEN-USASP2011000177

PATIENT
  Age: 73 Year
  Sex: Female

DRUGS (10)
  1. DEXILANT [Concomitant]
  2. PROLIA [Suspect]
     Indication: OSTEOPOROSIS
     Dosage: 60 MG, Q6MO
     Dates: start: 20101213
  3. LEVOTHYROXINE [Concomitant]
  4. VITAMIN C                          /00008001/ [Concomitant]
  5. STOOL SOFTENER [Concomitant]
  6. HYDROCHLOROTHIAZIDE [Concomitant]
  7. MULTI-VITAMINS [Concomitant]
  8. OSCAL                              /00108001/ [Concomitant]
  9. LIBRIUM                            /00011501/ [Concomitant]
  10. OCUVITE                            /01053801/ [Concomitant]

REACTIONS (1)
  - NASOPHARYNGITIS [None]
